FAERS Safety Report 6073782-3 (Version None)
Quarter: 2009Q1

REPORT INFORMATION
  Report Type: 
  Country: None (occurrence: None)
  Receive Date: 20090209
  Receipt Date: 20090209
  Transmission Date: 20090719
  Serious: Yes (Other)
  Sender: FDA-Public Use
  Company Number: None

PATIENT
  Age: 22 Year
  Sex: Female
  Weight: 62.5964 kg

DRUGS (1)
  1. MAXALT-MLT [Suspect]
     Indication: MIGRAINE
     Dosage: 10MG 1 PO
     Route: 048
     Dates: start: 20090127, end: 20090127

REACTIONS (6)
  - ASTHENIA [None]
  - BLINDNESS TRANSIENT [None]
  - DIARRHOEA [None]
  - DYSSTASIA [None]
  - NAUSEA [None]
  - PALLOR [None]
